FAERS Safety Report 22987230 (Version 2)
Quarter: 2023Q4

REPORT INFORMATION
  Report Type: Spontaneous
  Country: US (occurrence: US)
  Receive Date: 20230926
  Receipt Date: 20231016
  Transmission Date: 20240109
  Serious: Yes (Death, Hospitalization, Other)
  Sender: FDA-Public Use
  Company Number: US-SAMSUNG BIOEPIS-SB-2023-24820

PATIENT
  Age: 65 Year
  Sex: Male

DRUGS (2)
  1. INFLIXIMAB [Suspect]
     Active Substance: INFLIXIMAB
     Indication: Sarcoidosis
     Dosage: UNKNOWN
     Route: 065
  2. ADALIMUMAB [Suspect]
     Active Substance: ADALIMUMAB
     Indication: Psoriatic arthropathy
     Dosage: UNKNOWN
     Route: 065

REACTIONS (12)
  - Sarcoidosis [Recovering/Resolving]
  - Death [Fatal]
  - Urinary tract infection [Unknown]
  - Atrioventricular block second degree [Unknown]
  - COVID-19 [Unknown]
  - Cardiac failure congestive [Not Recovered/Not Resolved]
  - Bedridden [Unknown]
  - Wheelchair user [Unknown]
  - Loss of personal independence in daily activities [Recovering/Resolving]
  - Quality of life decreased [Recovering/Resolving]
  - Drug effective for unapproved indication [Unknown]
  - Off label use [Unknown]
